FAERS Safety Report 8905145 (Version 1)
Quarter: 2012Q4

REPORT INFORMATION
  Report Type: 
  Country: US (occurrence: US)
  Receive Date: 20121109
  Receipt Date: 20121109
  Transmission Date: 20130627
  Serious: Yes (Other)
  Sender: FDA-Public Use
  Company Number: US-ELI_LILLY_AND_COMPANY-US201211001267

PATIENT
  Age: 45 Year
  Sex: Male

DRUGS (1)
  1. BYDUREON [Suspect]
     Indication: TYPE 2 DIABETES MELLITUS
     Dosage: 2 mg, weekly (1/W)
     Route: 058
     Dates: start: 20121016, end: 20121030

REACTIONS (5)
  - Hypersensitivity [Unknown]
  - Eye swelling [Unknown]
  - Rash pruritic [Unknown]
  - Injection site erythema [Unknown]
  - Injection site inflammation [Unknown]
